FAERS Safety Report 7647651-9 (Version None)
Quarter: 2011Q3

REPORT INFORMATION
  Report Type: 
  Country: None (occurrence: None)
  Receive Date: 20110801
  Receipt Date: 20110801
  Transmission Date: 20111222
  Serious: Yes (Other)
  Sender: FDA-Public Use
  Company Number: None

PATIENT
  Age: 32 Year
  Sex: Female

DRUGS (2)
  1. VANCOMYCIN [Suspect]
     Indication: STAPHYLOCOCCAL BACTERAEMIA
     Dates: start: 20110314, end: 20110406
  2. VANCOMYCIN [Suspect]
     Indication: ENDOCARDITIS
     Dates: start: 20110314, end: 20110406

REACTIONS (2)
  - RASH MACULAR [None]
  - RASH ERYTHEMATOUS [None]
